FAERS Safety Report 5229207-0 (Version None)
Quarter: 2007Q1

REPORT INFORMATION
  Report Type: 
  Country: None (occurrence: None)
  Receive Date: 20061201
  Receipt Date: 20060809
  Transmission Date: 20070707
  Serious: No
  Sender: FDA-Public Use
  Company Number: US200608002093

PATIENT
  Age: 45 Year
  Sex: Female

DRUGS (6)
  1. CYMBALTA [Suspect]
     Indication: FIBROMYALGIA
     Dosage: SEE IMAGE
     Dates: start: 20060101, end: 20060101
  2. CYMBALTA [Suspect]
     Indication: FIBROMYALGIA
     Dosage: SEE IMAGE
     Dates: start: 20060701
  3. CYMBALTA [Suspect]
     Indication: FIBROMYALGIA
     Dosage: SEE IMAGE
     Dates: start: 20060101
  4. PREGABALIN (PREGABALIN) [Concomitant]
  5. ULTRACET [Concomitant]
  6. RELAFEN [Concomitant]

REACTIONS (3)
  - HEART RATE INCREASED [None]
  - MEDICATION ERROR [None]
  - PRURITUS [None]
